FAERS Safety Report 15839109 (Version 4)
Quarter: 2020Q4

REPORT INFORMATION
  Report Type: Spontaneous
  Country: US (occurrence: US)
  Receive Date: 20190117
  Receipt Date: 20201124
  Transmission Date: 20210113
  Serious: No
  Sender: FDA-Public Use
  Company Number: US-PFIZER INC-2019021959

PATIENT
  Age: 67 Year
  Sex: Female

DRUGS (1)
  1. LYRICA [Suspect]
     Active Substance: PREGABALIN
     Indication: FIBROMYALGIA
     Dosage: 150 MG, 1 (ONE) CAPSULE (150 MG TOTAL) BY MOUTH 3 (THREE) TIMES A DAY (DAYS SUPPLY PER FILL: 90)
     Route: 048

REACTIONS (2)
  - Dyspnoea [Unknown]
  - Illness [Unknown]
